FAERS Safety Report 9794923 (Version 1)
Quarter: 2014Q1

REPORT INFORMATION
  Report Type: Spontaneous
  Country: DE (occurrence: US)
  Receive Date: 20140102
  Receipt Date: 20140102
  Transmission Date: 20141002
  Serious: No
  Sender: FDA-Public Use
  Company Number: DE-JHP PHARMACEUTICALS, LLC-JHP201300469

PATIENT
  Sex: 0

DRUGS (2)
  1. APLISOL DIAGNOSTIC ANTIGEN [Suspect]
     Indication: TUBERCULIN TEST
     Dosage: UNK INTO EYE
     Route: 061
     Dates: start: 20130717, end: 20130717
  2. APLISOL DIAGNOSTIC ANTIGEN [Suspect]
     Dosage: 0.1 ML, SINGLE
     Route: 023
     Dates: start: 20130717, end: 20130717

REACTIONS (2)
  - Accidental exposure to product [Recovered/Resolved]
  - No adverse event [Recovered/Resolved]
